FAERS Safety Report 7063828 (Version 2)
Quarter: 2014Q2

REPORT INFORMATION
  Report Type: Spontaneous
  Country: US (occurrence: US)
  Receive Date: 20090727
  Receipt Date: 20140407
  Transmission Date: 20141212
  Serious: Yes (Death)
  Sender: FDA-Public Use
  Company Number: US-JNJFOC-20090705691

PATIENT
  Age: 47 Year
  Sex: Male

DRUGS (3)
  1. REMICADE [Suspect]
     Indication: HIDRADENITIS
     Dosage: 2ND COURSE
     Route: 042
  2. REMICADE [Suspect]
     Indication: HIDRADENITIS
     Dosage: 3RD COURSE
     Route: 042
  3. REMICADE [Suspect]
     Indication: HIDRADENITIS
     Dosage: 1ST COURSE
     Route: 042

REACTIONS (2)
  - Metastatic squamous cell carcinoma [Fatal]
  - Off label use [Unknown]
